FAERS Safety Report 6681933-2 (Version None)
Quarter: 2010Q2

REPORT INFORMATION
  Report Type: 
  Country: None (occurrence: None)
  Receive Date: 20100414
  Receipt Date: 20100323
  Transmission Date: 20101027
  Serious: Yes (Death)
  Sender: FDA-Public Use
  Company Number: NO-GENENTECH-300431

PATIENT
  Sex: Male

DRUGS (13)
  1. MABTHERA [Suspect]
     Indication: DRUG USE FOR UNKNOWN INDICATION
     Dosage: 1 DF, Q3W
     Route: 065
     Dates: start: 20090611, end: 20090723
  2. NEULASTA [Interacting]
     Indication: CHEMOTHERAPY
     Dosage: 1 DF, Q3W
     Route: 065
  3. CYCLOPHOSPHAMIDE [Interacting]
     Indication: DRUG USE FOR UNKNOWN INDICATION
     Dosage: 1 DF, Q3W
     Route: 065
     Dates: start: 20090611, end: 20090723
  4. MITOXANTRONE [Concomitant]
     Indication: DRUG USE FOR UNKNOWN INDICATION
     Dosage: 1 DF, Q3W
     Dates: start: 20090611, end: 20090723
  5. VINCRISTINE SULFATE [Concomitant]
     Indication: DRUG USE FOR UNKNOWN INDICATION
     Dosage: 1 DF, Q3W
     Dates: start: 20090611, end: 20090723
  6. PREDNISOLONE [Concomitant]
     Indication: DRUG USE FOR UNKNOWN INDICATION
     Dosage: UNK
     Dates: start: 20090611, end: 20090909
  7. MEROPENEM [Concomitant]
     Indication: DRUG USE FOR UNKNOWN INDICATION
     Dosage: UNK
  8. FLUCONAZOLE [Concomitant]
     Indication: DRUG USE FOR UNKNOWN INDICATION
     Dosage: UNK
     Dates: start: 20090916
  9. BENZYLPENICILLIN [Concomitant]
     Indication: DRUG USE FOR UNKNOWN INDICATION
     Dosage: UNK
     Dates: start: 20090216
  10. ETOPOSIDE [Concomitant]
     Indication: DRUG USE FOR UNKNOWN INDICATION
     Dosage: UNK
     Dates: start: 20090909, end: 20090909
  11. CYTARABINE [Concomitant]
     Indication: DRUG USE FOR UNKNOWN INDICATION
     Dosage: UNK
     Dates: start: 20090909, end: 20090909
  12. GENTAMICIN SULFATE [Concomitant]
     Indication: DRUG USE FOR UNKNOWN INDICATION
     Dosage: UNK
     Dates: start: 20090916
  13. SULFAMETHOXAZOLE AND TRIMETHOPRIM [Concomitant]
     Indication: DRUG USE FOR UNKNOWN INDICATION
     Dosage: UNK
     Dates: start: 20091001

REACTIONS (3)
  - DEATH [None]
  - DRUG INTERACTION [None]
  - PNEUMONITIS [None]
